FAERS Safety Report 8428883-9 (Version None)
Quarter: 2012Q2

REPORT INFORMATION
  Report Type: 
  Country: None (occurrence: None)
  Receive Date: 20120606
  Receipt Date: 20120529
  Transmission Date: 20120825
  Serious: No
  Sender: FDA-Public Use
  Company Number: C-12-032

PATIENT
  Sex: Male

DRUGS (1)
  1. PHENTERMINE HCL [Suspect]

REACTIONS (6)
  - NAUSEA [None]
  - RESTLESSNESS [None]
  - VOMITING [None]
  - ABDOMINAL PAIN [None]
  - GASTRIC DISORDER [None]
  - FEELING ABNORMAL [None]
